FAERS Safety Report 4353516-0 (Version None)
Quarter: 2004Q2

REPORT INFORMATION
  Report Type: 
  Country: None (occurrence: None)
  Receive Date: 20040505
  Receipt Date: 20040302
  Transmission Date: 20050107
  Serious: Yes (Other)
  Sender: FDA-Public Use
  Company Number: US-ROCHE-360709

PATIENT
  Age: 13 Year
  Sex: Male

DRUGS (2)
  1. ACCUTANE [Suspect]
     Route: 048
     Dates: start: 20031215, end: 20040108
  2. ACCUTANE [Suspect]
     Route: 048
     Dates: start: 20040111, end: 20040118

REACTIONS (2)
  - GRANULOMA [None]
  - SCAR [None]
